FAERS Safety Report 4324924-9 (Version None)
Quarter: 2004Q1

REPORT INFORMATION
  Report Type: 
  Country: None (occurrence: None)
  Receive Date: 20040323
  Receipt Date: 20040211
  Transmission Date: 20041129
  Serious: No
  Sender: FDA-Public Use
  Company Number: M04-341-036

PATIENT
  Age: 68 Year
  Sex: Male

DRUGS (10)
  1. VELCADE [Suspect]
     Indication: MULTIPLE MYELOMA
     Dates: start: 20040120, end: 20040123
  2. ACYCLOVIR [Concomitant]
  3. AMBIEN (ZOLPIDEM BITARTRATE) [Concomitant]
  4. BACTRIM [Concomitant]
  5. LACTULOSE [Concomitant]
  6. MEGESTROL [Concomitant]
  7. NEURONTIN [Concomitant]
  8. PANTOPRAZOLE [Concomitant]
  9. PROCRIT(ERYTHROPOIETIN) [Concomitant]
  10. TAMSULOSIN [Concomitant]

REACTIONS (4)
  - DIARRHOEA [None]
  - NAUSEA [None]
  - PYREXIA [None]
  - VISION BLURRED [None]
